FAERS Safety Report 15241884 (Version 3)
Quarter: 2018Q3

REPORT INFORMATION
  Report Type: Spontaneous
  Country: SK (occurrence: SK)
  Receive Date: 20180805
  Receipt Date: 20180822
  Transmission Date: 20181010
  Serious: Yes (Other)
  Sender: FDA-Public Use
  Company Number: SK-BEH-2018093384

PATIENT
  Age: 14 Year
  Sex: Male

DRUGS (1)
  1. HUMAN IMMUNOGLOBULIN (NC) [Suspect]
     Active Substance: HUMAN IMMUNOGLOBULIN G
     Indication: COMBINED IMMUNODEFICIENCY
     Dosage: UNK UNK, QMT
     Route: 042

REACTIONS (1)
  - Anaphylactoid reaction [Unknown]
